FAERS Safety Report 25685186 (Version 2)
Quarter: 2025Q3

REPORT INFORMATION
  Report Type: Spontaneous
  Country: AU (occurrence: AU)
  Receive Date: 20250815
  Receipt Date: 20250922
  Transmission Date: 20251021
  Serious: Yes (Other)
  Sender: MYLAN
  Company Number: AU-MYLANLABS-2025M1044122

PATIENT
  Age: 22 Year
  Sex: Male

DRUGS (48)
  1. CLOZARIL [Suspect]
     Active Substance: CLOZAPINE
     Indication: Schizophrenia
     Route: 048
  2. CLOZARIL [Suspect]
     Active Substance: CLOZAPINE
  3. CLOZARIL [Suspect]
     Active Substance: CLOZAPINE
  4. CLOZARIL [Suspect]
     Active Substance: CLOZAPINE
     Route: 048
  5. CLOZARIL [Suspect]
     Active Substance: CLOZAPINE
     Dosage: UNK, BID (125 MG IN MORNING AND 275 MG AT NIGHT)
     Route: 048
  6. CLOZARIL [Suspect]
     Active Substance: CLOZAPINE
     Dosage: UNK, BID (125 MG IN MORNING AND 275 MG AT NIGHT)
  7. CLOZARIL [Suspect]
     Active Substance: CLOZAPINE
     Dosage: UNK, BID (125 MG IN MORNING AND 275 MG AT NIGHT)
  8. CLOZARIL [Suspect]
     Active Substance: CLOZAPINE
     Dosage: UNK, BID (125 MG IN MORNING AND 275 MG AT NIGHT)
     Route: 048
  9. CLOZARIL [Suspect]
     Active Substance: CLOZAPINE
     Dosage: 275 MILLIGRAM, PM (NOCTE)
     Route: 048
     Dates: start: 20250703
  10. CLOZARIL [Suspect]
     Active Substance: CLOZAPINE
     Dosage: 275 MILLIGRAM, PM (NOCTE)
     Route: 048
     Dates: start: 20250703
  11. CLOZARIL [Suspect]
     Active Substance: CLOZAPINE
     Dosage: 275 MILLIGRAM, PM (NOCTE)
     Dates: start: 20250703
  12. CLOZARIL [Suspect]
     Active Substance: CLOZAPINE
     Dosage: 275 MILLIGRAM, PM (NOCTE)
     Dates: start: 20250703
  13. OLANZAPINE [Concomitant]
     Active Substance: OLANZAPINE
     Dosage: 20 MILLIGRAM, PM (OLANZAPINE WAFER; AT NIGHT)
     Dates: start: 20250627
  14. OLANZAPINE [Concomitant]
     Active Substance: OLANZAPINE
     Dosage: 20 MILLIGRAM, PM (OLANZAPINE WAFER; AT NIGHT)
     Route: 048
     Dates: start: 20250627
  15. OLANZAPINE [Concomitant]
     Active Substance: OLANZAPINE
     Dosage: 20 MILLIGRAM, PM (OLANZAPINE WAFER; AT NIGHT)
     Route: 048
     Dates: start: 20250627
  16. OLANZAPINE [Concomitant]
     Active Substance: OLANZAPINE
     Dosage: 20 MILLIGRAM, PM (OLANZAPINE WAFER; AT NIGHT)
     Dates: start: 20250627
  17. VALPROATE SODIUM [Concomitant]
     Active Substance: VALPROATE SODIUM
     Dosage: 1000 MILLIGRAM, BID (BD)
     Dates: start: 20250627
  18. VALPROATE SODIUM [Concomitant]
     Active Substance: VALPROATE SODIUM
     Dosage: 1000 MILLIGRAM, BID (BD)
     Route: 048
     Dates: start: 20250627
  19. VALPROATE SODIUM [Concomitant]
     Active Substance: VALPROATE SODIUM
     Dosage: 1000 MILLIGRAM, BID (BD)
     Route: 048
     Dates: start: 20250627
  20. VALPROATE SODIUM [Concomitant]
     Active Substance: VALPROATE SODIUM
     Dosage: 1000 MILLIGRAM, BID (BD)
     Dates: start: 20250627
  21. CANDESARTAN [Concomitant]
     Active Substance: CANDESARTAN
     Dosage: 8 MILLIGRAM, PM (AT NIGHT)
     Dates: start: 20250627
  22. CANDESARTAN [Concomitant]
     Active Substance: CANDESARTAN
     Dosage: 8 MILLIGRAM, PM (AT NIGHT)
     Route: 048
     Dates: start: 20250627
  23. CANDESARTAN [Concomitant]
     Active Substance: CANDESARTAN
     Dosage: 8 MILLIGRAM, PM (AT NIGHT)
     Route: 048
     Dates: start: 20250627
  24. CANDESARTAN [Concomitant]
     Active Substance: CANDESARTAN
     Dosage: 8 MILLIGRAM, PM (AT NIGHT)
     Dates: start: 20250627
  25. ROSUVASTATIN [Concomitant]
     Active Substance: ROSUVASTATIN
     Dosage: 40 MILLIGRAM, PM (AT NIGHT)
     Dates: start: 20250627
  26. ROSUVASTATIN [Concomitant]
     Active Substance: ROSUVASTATIN
     Dosage: 40 MILLIGRAM, PM (AT NIGHT)
     Route: 048
     Dates: start: 20250627
  27. ROSUVASTATIN [Concomitant]
     Active Substance: ROSUVASTATIN
     Dosage: 40 MILLIGRAM, PM (AT NIGHT)
     Route: 048
     Dates: start: 20250627
  28. ROSUVASTATIN [Concomitant]
     Active Substance: ROSUVASTATIN
     Dosage: 40 MILLIGRAM, PM (AT NIGHT)
     Dates: start: 20250627
  29. EMPAGLIFLOZIN AND METFORMIN HYDROCHLORIDE [Concomitant]
     Active Substance: EMPAGLIFLOZIN\METFORMIN HYDROCHLORIDE
     Dosage: UNK, BID (1G/12.5 MG BD)
     Dates: start: 20250627
  30. EMPAGLIFLOZIN AND METFORMIN HYDROCHLORIDE [Concomitant]
     Active Substance: EMPAGLIFLOZIN\METFORMIN HYDROCHLORIDE
     Dosage: UNK, BID (1G/12.5 MG BD)
     Route: 048
     Dates: start: 20250627
  31. EMPAGLIFLOZIN AND METFORMIN HYDROCHLORIDE [Concomitant]
     Active Substance: EMPAGLIFLOZIN\METFORMIN HYDROCHLORIDE
     Dosage: UNK, BID (1G/12.5 MG BD)
     Route: 048
     Dates: start: 20250627
  32. EMPAGLIFLOZIN AND METFORMIN HYDROCHLORIDE [Concomitant]
     Active Substance: EMPAGLIFLOZIN\METFORMIN HYDROCHLORIDE
     Dosage: UNK, BID (1G/12.5 MG BD)
     Dates: start: 20250627
  33. PANTOPRAZOLE [Concomitant]
     Active Substance: PANTOPRAZOLE
     Dosage: 40 MILLIGRAM, QD (DAILY)
     Dates: start: 20250627
  34. PANTOPRAZOLE [Concomitant]
     Active Substance: PANTOPRAZOLE
     Dosage: 40 MILLIGRAM, QD (DAILY)
     Route: 048
     Dates: start: 20250627
  35. PANTOPRAZOLE [Concomitant]
     Active Substance: PANTOPRAZOLE
     Dosage: 40 MILLIGRAM, QD (DAILY)
     Route: 048
     Dates: start: 20250627
  36. PANTOPRAZOLE [Concomitant]
     Active Substance: PANTOPRAZOLE
     Dosage: 40 MILLIGRAM, QD (DAILY)
     Dates: start: 20250627
  37. VITAMIN C [Concomitant]
     Active Substance: ASCORBIC ACID
     Dosage: 500 MILLIGRAM, PM (AT NIGHT)
     Dates: start: 20250627
  38. VITAMIN C [Concomitant]
     Active Substance: ASCORBIC ACID
     Dosage: 500 MILLIGRAM, PM (AT NIGHT)
     Route: 048
     Dates: start: 20250627
  39. VITAMIN C [Concomitant]
     Active Substance: ASCORBIC ACID
     Dosage: 500 MILLIGRAM, PM (AT NIGHT)
     Route: 048
     Dates: start: 20250627
  40. VITAMIN C [Concomitant]
     Active Substance: ASCORBIC ACID
     Dosage: 500 MILLIGRAM, PM (AT NIGHT)
     Dates: start: 20250627
  41. VITAMIN D [Concomitant]
     Active Substance: VITAMIN D NOS
     Dosage: 1000 INTERNATIONAL UNIT, PM (AT NIGHT)
     Dates: start: 20250627
  42. VITAMIN D [Concomitant]
     Active Substance: VITAMIN D NOS
     Dosage: 1000 INTERNATIONAL UNIT, PM (AT NIGHT)
     Route: 048
     Dates: start: 20250627
  43. VITAMIN D [Concomitant]
     Active Substance: VITAMIN D NOS
     Dosage: 1000 INTERNATIONAL UNIT, PM (AT NIGHT)
     Route: 048
     Dates: start: 20250627
  44. VITAMIN D [Concomitant]
     Active Substance: VITAMIN D NOS
     Dosage: 1000 INTERNATIONAL UNIT, PM (AT NIGHT)
     Dates: start: 20250627
  45. LACTULOSE [Concomitant]
     Active Substance: LACTULOSE
     Dosage: 15 MILLILITER, BID (BD)
     Dates: start: 20250627
  46. LACTULOSE [Concomitant]
     Active Substance: LACTULOSE
     Dosage: 15 MILLILITER, BID (BD)
     Route: 048
     Dates: start: 20250627
  47. LACTULOSE [Concomitant]
     Active Substance: LACTULOSE
     Dosage: 15 MILLILITER, BID (BD)
     Route: 048
     Dates: start: 20250627
  48. LACTULOSE [Concomitant]
     Active Substance: LACTULOSE
     Dosage: 15 MILLILITER, BID (BD)
     Dates: start: 20250627

REACTIONS (6)
  - Antipsychotic drug level increased [Not Recovered/Not Resolved]
  - White blood cell count increased [Recovered/Resolved]
  - Neutrophil count increased [Recovering/Resolving]
  - Infection [Unknown]
  - Eosinophil count decreased [Not Recovered/Not Resolved]
  - Red cell distribution width increased [Recovered/Resolved]

NARRATIVE: CASE EVENT DATE: 20250519
